FAERS Safety Report 8228842-5 (Version None)
Quarter: 2012Q1

REPORT INFORMATION
  Report Type: 
  Country: None (occurrence: None)
  Receive Date: 20120322
  Receipt Date: 20120316
  Transmission Date: 20120608
  Serious: Yes (Other)
  Sender: FDA-Public Use
  Company Number: JP-GLAXOSMITHKLINE-B0789940A

PATIENT
  Sex: Male

DRUGS (2)
  1. UNKNOWN DRUG [Concomitant]
     Route: 065
  2. BETNOVATE [Suspect]
     Indication: PRURITUS GENITAL
     Route: 061
     Dates: end: 20120316

REACTIONS (1)
  - BIRTH MARK [None]
